FAERS Safety Report 4921434-2 (Version None)
Quarter: 2006Q1

REPORT INFORMATION
  Report Type: 
  Country: None (occurrence: None)
  Receive Date: 20060221
  Receipt Date: 20060210
  Transmission Date: 20060701
  Serious: Yes (Other)
  Sender: FDA-Public Use
  Company Number: 222035

PATIENT
  Age: 64 Year
  Sex: Male

DRUGS (11)
  1. RITUXAN (RITUXIMAB) CONC FOR SOLUTION FOR INFUSION [Suspect]
     Indication: NON-HODGKIN'S LYMPHOMA
     Dosage: 640 MG, INTRAVENOUS
     Route: 042
     Dates: start: 20041215, end: 20050215
  2. DOXORUBICIN HCL [Suspect]
     Indication: NON-HODGKIN'S LYMPHOMA
     Dosage: 85 MG, INTRAVENOUS
     Route: 042
     Dates: start: 20041215, end: 20050404
  3. CYCLOPHOSPHAMIDE [Suspect]
     Indication: NON-HODGKIN'S LYMPHOMA
     Dosage: 1275 MG, INTRAVENOUS
     Route: 042
     Dates: start: 20041215, end: 20050404
  4. VINCRISTINE [Suspect]
     Indication: NON-HODGKIN'S LYMPHOMA
     Dosage: 2 MG, INTRAVENOUS
     Route: 042
     Dates: start: 20041215, end: 20050404
  5. PREDNISOLONE [Suspect]
     Indication: NON-HODGKIN'S LYMPHOMA
     Dosage: 100 MG, ORAL
     Route: 048
     Dates: start: 20041215, end: 20050408
  6. IBUPROFEN [Concomitant]
  7. CHLORPHENIRAMINE MALEATE [Concomitant]
  8. FAMOTIDINE [Concomitant]
  9. IRSOGLADINE MALEATE (IRSOGLADINE MALEATE) [Concomitant]
  10. FLUCONAZOLE [Concomitant]
  11. SULFAMETHOXAZOLE + TRIMETHOPRIM [Concomitant]

REACTIONS (4)
  - GAMMA-GLUTAMYLTRANSFERASE INCREASED [None]
  - HAEMOGLOBIN DECREASED [None]
  - NEUTROPHIL COUNT DECREASED [None]
  - WHITE BLOOD CELL COUNT DECREASED [None]
